FAERS Safety Report 16882214 (Version 2)
Quarter: 2020Q1

REPORT INFORMATION
  Report Type: Spontaneous
  Country: CA (occurrence: CA)
  Receive Date: 20191003
  Receipt Date: 20200210
  Transmission Date: 20200409
  Serious: Yes (Life-Threatening, Hospitalization, Other)
  Sender: FDA-Public Use
  Company Number: CA-TEVA-2019-CA-1116636

PATIENT
  Age: 52 Year
  Sex: Male

DRUGS (25)
  1. MORPHINE [Interacting]
     Active Substance: MORPHINE
     Route: 065
  2. DIAZEPAM. [Suspect]
     Active Substance: DIAZEPAM
     Indication: SPINAL STENOSIS
     Route: 048
  3. CIPRALEX [Suspect]
     Active Substance: ESCITALOPRAM OXALATE
     Route: 065
  4. CITALOPRAM [Interacting]
     Active Substance: CITALOPRAM HYDROBROMIDE
     Indication: PRODUCT USED FOR UNKNOWN INDICATION
     Route: 048
  5. OXYCODONE [Interacting]
     Active Substance: OXYCODONE
     Indication: SPINAL STENOSIS
     Route: 065
  6. ALTACE [Suspect]
     Active Substance: RAMIPRIL
     Indication: PRODUCT USED FOR UNKNOWN INDICATION
     Route: 065
  7. LORAZEPAM. [Suspect]
     Active Substance: LORAZEPAM
     Indication: INSOMNIA
     Route: 048
  8. MORPHINE [Interacting]
     Active Substance: MORPHINE
     Route: 065
  9. ZOPICLONE [Interacting]
     Active Substance: ZOPICLONE
     Route: 048
  10. DIAZEPAM. [Suspect]
     Active Substance: DIAZEPAM
     Route: 048
  11. LORAZEPAM. [Interacting]
     Active Substance: LORAZEPAM
     Route: 048
  12. MORPHINE [Interacting]
     Active Substance: MORPHINE
     Indication: PRODUCT USED FOR UNKNOWN INDICATION
     Route: 065
  13. ZOPICLONE [Interacting]
     Active Substance: ZOPICLONE
     Dosage: 15 MILLIGRAM DAILY;
     Route: 048
  14. OXYCODONE [Interacting]
     Active Substance: OXYCODONE
     Route: 065
  15. OXYCODONE- ACETAMINOPHEN [Interacting]
     Active Substance: ACETAMINOPHEN\OXYCODONE HYDROCHLORIDE
     Indication: PRODUCT USED FOR UNKNOWN INDICATION
     Route: 048
  16. ZOPICLONE [Interacting]
     Active Substance: ZOPICLONE
     Indication: INSOMNIA
     Route: 065
  17. MORPHINE [Interacting]
     Active Substance: MORPHINE
     Indication: DEPRESSION
     Route: 048
  18. OXYCODONE [Interacting]
     Active Substance: OXYCODONE
     Route: 048
  19. CIPRALEX [Suspect]
     Active Substance: ESCITALOPRAM OXALATE
     Route: 048
  20. MORPHINE [Interacting]
     Active Substance: MORPHINE
     Indication: SPINAL STENOSIS
     Dosage: 30 MILLIGRAM DAILY;
     Route: 048
  21. MORPHINE [Interacting]
     Active Substance: MORPHINE
     Route: 065
  22. MORPHINE [Interacting]
     Active Substance: MORPHINE
     Route: 065
  23. MORPHINE [Interacting]
     Active Substance: MORPHINE
     Route: 048
  24. OXYCODONE [Interacting]
     Active Substance: OXYCODONE
     Route: 048
  25. CIPRALEX [Suspect]
     Active Substance: ESCITALOPRAM OXALATE
     Indication: DEPRESSION
     Dosage: 10 MILLIGRAM DAILY;
     Route: 065

REACTIONS (22)
  - Blood creatinine increased [Unknown]
  - Mechanical ventilation [Unknown]
  - Bradycardia [Unknown]
  - Drug interaction [Unknown]
  - Electrocardiogram QT prolonged [Unknown]
  - Electrocardiogram abnormal [Unknown]
  - Sinus tachycardia [Unknown]
  - Blood potassium increased [Unknown]
  - Drug screen positive [Unknown]
  - Loss of consciousness [Unknown]
  - Coma scale abnormal [Unknown]
  - Blood creatine phosphokinase increased [Unknown]
  - Coma [Unknown]
  - Intentional overdose [Unknown]
  - Opiates positive [Unknown]
  - Hypotension [Unknown]
  - Overdose [Unknown]
  - Oxygen saturation decreased [Unknown]
  - Blood pressure decreased [Unknown]
  - Heart rate decreased [Unknown]
  - Suicide attempt [Unknown]
  - Hyperkalaemia [Unknown]
